FAERS Safety Report 9955635 (Version 1)
Quarter: 2014Q1

REPORT INFORMATION
  Report Type: Report from Study
  Country: US (occurrence: US)
  Receive Date: 20140304
  Receipt Date: 20140304
  Transmission Date: 20141002
  Serious: No
  Sender: FDA-Public Use
  Company Number: US-ABBVIE-13P-163-1084686-00

PATIENT
  Age: 64 Year
  Sex: Female
  Weight: 124.85 kg

DRUGS (10)
  1. HUMIRA [Suspect]
     Indication: RHEUMATOID ARTHRITIS
     Route: 058
     Dates: start: 2007, end: 201303
  2. METHOTREXATE [Concomitant]
     Indication: RHEUMATOID ARTHRITIS
  3. LISINOPRIL [Concomitant]
     Indication: HYPERTENSION
  4. ALLOPURINOL [Concomitant]
     Indication: GOUT
  5. FOLIC ACID [Concomitant]
     Indication: SUPPLEMENTATION THERAPY
  6. PREDNISONE [Concomitant]
     Indication: RHEUMATOID ARTHRITIS
  7. MULTIVITAMIN [Concomitant]
     Indication: SUPPLEMENTATION THERAPY
  8. CALCIUM [Concomitant]
     Indication: SUPPLEMENTATION THERAPY
  9. VITAMIN D [Concomitant]
     Indication: SUPPLEMENTATION THERAPY
  10. VITAMIN B12 [Concomitant]
     Indication: SUPPLEMENTATION THERAPY

REACTIONS (1)
  - Drug ineffective [Not Recovered/Not Resolved]
